FAERS Safety Report 5167524-3 (Version None)
Quarter: 2006Q4

REPORT INFORMATION
  Report Type: 
  Country: None (occurrence: None)
  Receive Date: 20060830
  Receipt Date: 20060601
  Transmission Date: 20070319
  Serious: Yes (Other)
  Sender: FDA-Public Use
  Company Number: 225705

PATIENT
  Age: 50 Year
  Sex: Female

DRUGS (13)
  1. XOLAIR [Suspect]
     Indication: ASTHMA
     Dosage: 300 MG, Q2W, SUBCUTANEOUS
     Route: 058
     Dates: start: 20050125
  2. ESTRADIOL INJ [Concomitant]
  3. ALBUTEROL (ALBUTEROL/ALBUTEROL SULFATE) [Concomitant]
  4. FLOVENT [Concomitant]
  5. FUROSEMIDE [Concomitant]
  6. DEPO-PROVERA SUSPENSION/INJ [Concomitant]
  7. K-DUR 10 [Concomitant]
  8. PROZAC [Concomitant]
  9. ALLEGRA [Concomitant]
  10. SEREVENT DISKUS (SALMETEROL XINAFOATE) [Concomitant]
  11. ALEVE SINUS (COLD AND SINUS REMEDIES) [Concomitant]
  12. ALREX (LOTEPREDNOL ETABONATE) [Concomitant]
  13. NASONEX [Concomitant]

REACTIONS (1)
  - LUNG NEOPLASM MALIGNANT [None]
